FAERS Safety Report 23671372 (Version 1)
Quarter: 2024Q1

REPORT INFORMATION
  Report Type: Spontaneous
  Country: ES (occurrence: ES)
  Receive Date: 20240326
  Receipt Date: 20240326
  Transmission Date: 20240410
  Serious: Yes (Hospitalization, Other)
  Sender: FDA-Public Use
  Company Number: ES-JNJFOC-20240355602

PATIENT
  Age: 65 Year
  Sex: Female

DRUGS (3)
  1. SPRAVATO [Suspect]
     Active Substance: ESKETAMINE
     Indication: Product used for unknown indication
     Dosage: IN THE FIRST TWO WEEKS, THE PATIENT USED A 28 MG DEVICE IN A DOUBLE WEEKLY SESSION
  2. SPRAVATO [Suspect]
     Active Substance: ESKETAMINE
     Dosage: DURING THE THIRD WEEK, ONE MORE WEEKLY SESSION WAS INCREASED
  3. SPRAVATO [Suspect]
     Active Substance: ESKETAMINE
     Dosage: THE FOURTH WEEK THE DOSE WAS INCREASED TO TWO DEVICES.

REACTIONS (2)
  - Cerebral haemorrhage [Unknown]
  - Intentional self-injury [Unknown]
